FAERS Safety Report 8457329-X (Version None)
Quarter: 2012Q2

REPORT INFORMATION
  Report Type: 
  Country: None (occurrence: None)
  Receive Date: 20120621
  Receipt Date: 20120619
  Transmission Date: 20120825
  Serious: Yes (Hospitalization, Other)
  Sender: FDA-Public Use
  Company Number: FR-PFIZER INC-2012137824

PATIENT
  Age: 77 Year
  Sex: Female

DRUGS (16)
  1. METEOSPASMYL [Concomitant]
     Dosage: UNK
  2. ALLOPURINOL [Concomitant]
     Dosage: UNK
  3. CRESTOR [Concomitant]
     Dosage: UNK
  4. CELEBREX [Suspect]
     Indication: OSTEOARTHRITIS
     Dosage: UNK
     Route: 048
     Dates: start: 20111001, end: 20111017
  5. TRAMADOL HYDROCHLORIDE [Concomitant]
     Dosage: UNK
  6. ACETAMINOPHEN [Concomitant]
     Dosage: UNK
  7. PLAVIX [Concomitant]
     Dosage: UNK
  8. COLCHICINE [Concomitant]
     Dosage: UNK
  9. PRAXILENE [Concomitant]
     Dosage: UNK
  10. CLONAZEPAM [Concomitant]
     Dosage: UNK
  11. OMEPRAZOLE [Concomitant]
     Dosage: UNK
  12. LYRICA [Concomitant]
     Dosage: UNK
  13. IRBESARTAN AND HYDROCHLOROTHIAZIDE [Suspect]
     Dosage: UNK
     Route: 048
  14. SPASFON [Concomitant]
     Dosage: UNK
  15. MOVIPREP [Concomitant]
     Dosage: UNK
  16. VITAMIN D [Concomitant]
     Dosage: UNK

REACTIONS (17)
  - RENAL FAILURE [None]
  - CONFUSIONAL STATE [None]
  - GENERAL PHYSICAL HEALTH DETERIORATION [None]
  - ESCHERICHIA URINARY TRACT INFECTION [None]
  - HYPERTHERMIA [None]
  - CYTOLYTIC HEPATITIS [None]
  - DEHYDRATION [None]
  - APLASTIC ANAEMIA [None]
  - FAECALOMA [None]
  - LEUKOCYTOSIS [None]
  - ANAEMIA MACROCYTIC [None]
  - INFLAMMATION [None]
  - ASTHENIA [None]
  - CHOLESTASIS [None]
  - ARTHRALGIA [None]
  - BLADDER DISORDER [None]
  - HYPONATRAEMIA [None]
